FAERS Safety Report 19821195 (Version 1)
Quarter: 2021Q3

REPORT INFORMATION
  Report Type: Spontaneous
  Country: US (occurrence: US)
  Receive Date: 20210913
  Receipt Date: 20210913
  Transmission Date: 20211014
  Serious: Yes (Other)
  Sender: FDA-Public Use
  Company Number: US-NOVEN PHARMACEUTICALS, INC.-2021-NOV-US003466

PATIENT
  Sex: Female
  Weight: 83.9 kg

DRUGS (6)
  1. TESTOSTERONE. [Concomitant]
     Active Substance: TESTOSTERONE
     Indication: MENOPAUSE
     Dosage: UNK, UNKNOWN
     Route: 061
  2. LUNESTA [Concomitant]
     Active Substance: ESZOPICLONE
     Indication: INITIAL INSOMNIA
     Dosage: UNK, UNKNOWN
     Route: 065
  3. COMBIPATCH [Suspect]
     Active Substance: ESTRADIOL\NORETHINDRONE ACETATE
     Indication: MENOPAUSE
     Dosage: 0.05/0.14 MG
     Route: 062
     Dates: start: 2018
  4. COMBIPATCH [Suspect]
     Active Substance: ESTRADIOL\NORETHINDRONE ACETATE
     Indication: DYSPEPSIA
     Dosage: 0.05/0.14 MG
     Route: 062
     Dates: start: 2010, end: 2011
  5. HYDROCORTISONE. [Concomitant]
     Active Substance: HYDROCORTISONE
     Indication: MENOPAUSE
     Dosage: UNK, UNKNOWN
     Route: 065
  6. TRAZODONE [Concomitant]
     Active Substance: TRAZODONE HYDROCHLORIDE
     Indication: INITIAL INSOMNIA
     Dosage: UNK, UNKNOWN
     Route: 065

REACTIONS (9)
  - Uterine leiomyoma [Recovered/Resolved]
  - Drug ineffective [Not Recovered/Not Resolved]
  - Gastrooesophageal reflux disease [Not Recovered/Not Resolved]
  - Weight decreased [Recovered/Resolved]
  - Panic attack [Not Recovered/Not Resolved]
  - Diarrhoea [Not Recovered/Not Resolved]
  - Product administered at inappropriate site [Recovered/Resolved]
  - Tension headache [Not Recovered/Not Resolved]
  - Postmenopausal haemorrhage [Recovered/Resolved]

NARRATIVE: CASE EVENT DATE: 2010
